FAERS Safety Report 17979226 (Version 1)
Quarter: 2020Q3

REPORT INFORMATION
  Report Type: Spontaneous
  Country: IT (occurrence: IT)
  Receive Date: 20200703
  Receipt Date: 20200703
  Transmission Date: 20201103
  Serious: Yes (Other)
  Sender: FDA-Public Use
  Company Number: IT-VIIV HEALTHCARE LIMITED-IT2020EME114321

PATIENT
  Sex: Male

DRUGS (1)
  1. TIVICAY [Suspect]
     Active Substance: DOLUTEGRAVIR SODIUM
     Indication: HIV INFECTION
     Dosage: UNK
     Dates: start: 2015, end: 202004

REACTIONS (6)
  - Mania [Unknown]
  - Insomnia [Unknown]
  - Panic reaction [Unknown]
  - Psychomotor hyperactivity [Unknown]
  - Delirium [Unknown]
  - Obsessive thoughts [Unknown]
